FAERS Safety Report 15561659 (Version 2)
Quarter: 2018Q4

REPORT INFORMATION
  Report Type: Spontaneous
  Country: AU (occurrence: AU)
  Receive Date: 20181029
  Receipt Date: 20181114
  Transmission Date: 20190205
  Serious: Yes (Disabling, Other)
  Sender: FDA-Public Use
  Company Number: AU-GLAXOSMITHKLINE-AU2016GSK102252

PATIENT
  Age: 28 Year
  Sex: Male
  Weight: 90 kg

DRUGS (1)
  1. TAFENOQUINE [Suspect]
     Active Substance: TAFENOQUINE
     Indication: PRODUCT USED FOR UNKNOWN INDICATION
     Dosage: 200 MG, UNK
     Dates: start: 20001018, end: 20010423

REACTIONS (31)
  - Post-traumatic stress disorder [Unknown]
  - Complex regional pain syndrome [Unknown]
  - Abulia [Unknown]
  - Mood swings [Not Recovered/Not Resolved]
  - Hallucination [Not Recovered/Not Resolved]
  - Pain [Unknown]
  - Aggression [Not Recovered/Not Resolved]
  - Suicidal ideation [Unknown]
  - Depression [Unknown]
  - Vitreous floaters [Not Recovered/Not Resolved]
  - Tinnitus [Not Recovered/Not Resolved]
  - Dizziness [Not Recovered/Not Resolved]
  - Sleep disorder [Unknown]
  - Hyperhidrosis [Unknown]
  - Impaired work ability [Unknown]
  - Coordination abnormal [Unknown]
  - Malaise [Unknown]
  - Struck by lightning [Unknown]
  - Major depression [Unknown]
  - Abnormal dreams [Not Recovered/Not Resolved]
  - Cognitive disorder [Unknown]
  - Diarrhoea [Not Recovered/Not Resolved]
  - Vertigo [Not Recovered/Not Resolved]
  - Abdominal pain [Not Recovered/Not Resolved]
  - Blood pressure increased [Unknown]
  - Heart rate increased [Unknown]
  - Nightmare [Unknown]
  - Amnesia [Unknown]
  - Paranoia [Not Recovered/Not Resolved]
  - Anxiety [Not Recovered/Not Resolved]
  - Confusional state [Not Recovered/Not Resolved]

NARRATIVE: CASE EVENT DATE: 20001018
